FAERS Safety Report 7654158-1 (Version None)
Quarter: 2011Q3

REPORT INFORMATION
  Report Type: 
  Country: None (occurrence: None)
  Receive Date: 20110803
  Receipt Date: 20110727
  Transmission Date: 20111222
  Serious: Yes (Death, Hospitalization)
  Sender: FDA-Public Use
  Company Number: PHHY2011BR67940

PATIENT
  Sex: Female

DRUGS (3)
  1. DIOVAN [Suspect]
     Dosage: 80 MG, ONE TABLET IN THE MORNING AND ONE TABLET AT NIGHT
  2. DIOVAN [Suspect]
     Dosage: 160 MG, ONE TABLET IN MORNING
  3. CALTREN [Suspect]
     Dosage: UNK UKN, UNK

REACTIONS (6)
  - PNEUMONIA [None]
  - SWELLING [None]
  - OEDEMA PERIPHERAL [None]
  - FLUID RETENTION [None]
  - CARDIAC FAILURE [None]
  - PULMONARY OEDEMA [None]
